FAERS Safety Report 10577368 (Version 2)
Quarter: 2015Q1

REPORT INFORMATION
  Report Type: Spontaneous
  Country: US (occurrence: US)
  Receive Date: 20141111
  Receipt Date: 20150122
  Transmission Date: 20150720
  Serious: Yes (Other)
  Sender: FDA-Public Use
  Company Number: US-LUNDBECK-DKLU1105229

PATIENT
  Age: 79 Year
  Sex: Female

DRUGS (4)
  1. UNSPECIFIED PARKINSONS DISEASE MEDICATION [Concomitant]
     Indication: PARKINSON^S DISEASE
  2. NORTHERA [Suspect]
     Active Substance: DROXIDOPA
     Indication: ORTHOSTATIC HYPOTENSION
     Route: 048
     Dates: start: 201410
  3. NORTHERA [Suspect]
     Active Substance: DROXIDOPA
     Route: 048
     Dates: start: 20141031
  4. UNSPECIFIED VITAMINS [Concomitant]
     Indication: PRODUCT USED FOR UNKNOWN INDICATION

REACTIONS (6)
  - Blood pressure fluctuation [Recovered/Resolved]
  - Drug ineffective [Recovered/Resolved]
  - Hypertension [Recovered/Resolved]
  - Fall [Recovered/Resolved]
  - Loss of consciousness [Recovered/Resolved]
  - Seizure like phenomena [Recovered/Resolved]

NARRATIVE: CASE EVENT DATE: 201410
